FAERS Safety Report 7336178-X (Version None)
Quarter: 2011Q1

REPORT INFORMATION
  Report Type: 
  Country: None (occurrence: None)
  Receive Date: 20110307
  Receipt Date: 20110302
  Transmission Date: 20110831
  Serious: Yes (Other)
  Sender: FDA-Public Use
  Company Number: DE-PFIZER INC-2011046337

PATIENT
  Sex: Female
  Weight: 63 kg

DRUGS (1)
  1. LYRICA [Suspect]
     Indication: DISCOMFORT
     Dosage: 150 MG, 2X/DAY
     Route: 048

REACTIONS (5)
  - WEIGHT INCREASED [None]
  - MULTIPLE SCLEROSIS [None]
  - WITHDRAWAL SYNDROME [None]
  - DEPRESSION [None]
  - INCREASED APPETITE [None]
